FAERS Safety Report 23456381 (Version 2)
Quarter: 2024Q1

REPORT INFORMATION
  Report Type: Spontaneous
  Country: JP (occurrence: JP)
  Receive Date: 20240130
  Receipt Date: 20240312
  Transmission Date: 20240410
  Serious: Yes (Hospitalization)
  Sender: FDA-Public Use
  Company Number: JP-BAYER-2024A015179

PATIENT
  Age: 36 Year
  Sex: Female
  Weight: 44 kg

DRUGS (1)
  1. GADOXETATE DISODIUM [Suspect]
     Active Substance: GADOXETATE DISODIUM
     Indication: Magnetic resonance imaging
     Dosage: 5ML ONCE
     Route: 042
     Dates: start: 20240123

REACTIONS (2)
  - Oropharyngeal discomfort [Recovered/Resolved]
  - Eye pruritus [Recovered/Resolved]

NARRATIVE: CASE EVENT DATE: 20240123
